FAERS Safety Report 6601531 (Version 2)
Quarter: 2020Q3

REPORT INFORMATION
  Report Type: Report from Study
  Country: US (occurrence: US)
  Receive Date: 20080331
  Receipt Date: 20080417
  Transmission Date: 20201105
  Serious: Yes (Death)
  Sender: FDA-Public Use
  Company Number: US-ROCHE-554859

PATIENT

DRUGS (2)
  1. IBANDRONIC ACID. [Suspect]
     Active Substance: IBANDRONIC ACID
     Indication: OSTEOPOROSIS
     Route: 065
  2. IBANDRONIC ACID. [Suspect]
     Active Substance: IBANDRONIC ACID
     Dosage: INDICATION: OSTEOPOROSIS WITH MULTIPLE FRACTURES
     Route: 065

REACTIONS (2)
  - Respiratory failure [Fatal]
  - Pulmonary fibrosis [Fatal]
